FAERS Safety Report 23606250 (Version 9)
Quarter: 2025Q1

REPORT INFORMATION
  Report Type: Spontaneous
  Country: US (occurrence: US)
  Receive Date: 20240307
  Receipt Date: 20250314
  Transmission Date: 20250408
  Serious: Yes (Hospitalization)
  Sender: MERCK SHARP & DOHME LLC
  Company Number: US-SANDOZ-SDZ2024US024324

PATIENT
  Sex: Female
  Weight: 86.183 kg

DRUGS (23)
  1. WINREVAIR [Suspect]
     Active Substance: SOTATERCEPT-CSRK
     Indication: Pulmonary arterial hypertension
     Dosage: DOSE DESCRIPTION : 1.2 MILLILITER (0.3 MILLIGRAM/KILOGRAM), STRENGTH: 60 MG?DAILY DOSE : 0.056 MI...
     Route: 058
     Dates: start: 20241021
  2. WINREVAIR [Suspect]
     Active Substance: SOTATERCEPT-CSRK
  3. WINREVAIR [Suspect]
     Active Substance: SOTATERCEPT-CSRK
  4. WINREVAIR [Suspect]
     Active Substance: SOTATERCEPT-CSRK
  5. TREPROSTINIL [Suspect]
     Active Substance: TREPROSTINIL
     Indication: Pulmonary arterial hypertension
     Route: 042
     Dates: start: 20240301
  6. TYVASO DPI [Suspect]
     Active Substance: TREPROSTINIL
     Route: 065
  7. LORATADINE [Concomitant]
     Active Substance: LORATADINE
  8. JARDIANCE [Concomitant]
     Active Substance: EMPAGLIFLOZIN
  9. ALBUTEROL SULFATE [Concomitant]
     Active Substance: ALBUTEROL SULFATE
  10. ACETAMINOPHEN [Concomitant]
     Active Substance: ACETAMINOPHEN
  11. OXYGEN [Concomitant]
     Active Substance: OXYGEN
  12. LEVOTHYROXINE SODIUM [Concomitant]
     Active Substance: LEVOTHYROXINE SODIUM
  13. FUROSEMIDE [Concomitant]
     Active Substance: FUROSEMIDE
  14. OPSUMIT [Concomitant]
     Active Substance: MACITENTAN
  15. SPIRONOLACTONE [Concomitant]
     Active Substance: SPIRONOLACTONE
  16. SILDENAFIL CITRATE [Concomitant]
     Active Substance: SILDENAFIL CITRATE
  17. ONDANSETRON HYDROCHLORIDE [Concomitant]
     Active Substance: ONDANSETRON HYDROCHLORIDE
  18. METOPROLOL SUCCINATE [Concomitant]
     Active Substance: METOPROLOL SUCCINATE
  19. MAGNESIUM OXIDE [Concomitant]
     Active Substance: MAGNESIUM OXIDE
  20. ELIQUIS [Concomitant]
     Active Substance: APIXABAN
  21. VITAMINS NOS [Concomitant]
     Active Substance: VITAMINS
  22. FAMOTIDINE [Concomitant]
     Active Substance: FAMOTIDINE
  23. VITAMINS [Concomitant]
     Active Substance: VITAMINS

REACTIONS (13)
  - Injection site erythema [Unknown]
  - Haemoglobin abnormal [Unknown]
  - Injection site bruising [Unknown]
  - Back pain [Unknown]
  - Hot flush [Unknown]
  - Haemoglobin increased [Unknown]
  - Headache [Unknown]
  - Pain in extremity [Unknown]
  - Hypotension [Unknown]
  - Pain in jaw [Unknown]
  - Nausea [Unknown]
  - Diarrhoea [Unknown]
  - Injection site pruritus [Unknown]

NARRATIVE: CASE EVENT DATE: 20240101
